FAERS Safety Report 7579363-4 (Version None)
Quarter: 2011Q2

REPORT INFORMATION
  Report Type: 
  Country: None (occurrence: None)
  Receive Date: 20110629
  Receipt Date: 20110615
  Transmission Date: 20111010
  Serious: Yes (Death, Hospitalization, Other)
  Sender: FDA-Public Use
  Company Number: BE-PAR PHARMACEUTICAL, INC-2011SCPR003077

PATIENT

DRUGS (1)
  1. TRAMADOL HCL [Suspect]
     Indication: ABDOMINAL SYMPTOM
     Dosage: UNK, UNKNOWN
     Route: 048

REACTIONS (5)
  - CARDIAC ARREST [None]
  - MULTI-ORGAN FAILURE [None]
  - OVERDOSE [None]
  - DEATH [None]
  - PULMONARY OEDEMA [None]
